FAERS Safety Report 6591148-4 (Version None)
Quarter: 2010Q1

REPORT INFORMATION
  Report Type: 
  Country: None (occurrence: None)
  Receive Date: 20100219
  Receipt Date: 20090722
  Transmission Date: 20100710
  Serious: No
  Sender: FDA-Public Use
  Company Number: US-BRISTOL-MYERS SQUIBB COMPANY-14711006

PATIENT
  Age: 38 Year
  Sex: Female

DRUGS (3)
  1. KENALOG-10 [Suspect]
     Indication: ALOPECIA AREATA
     Dates: start: 20090701
  2. VALTREX [Concomitant]
  3. AVIANE-28 [Concomitant]
     Indication: ORAL CONTRACEPTION

REACTIONS (1)
  - URTICARIA [None]
